FAERS Safety Report 6141036-2 (Version None)
Quarter: 2009Q2

REPORT INFORMATION
  Report Type: 
  Country: None (occurrence: None)
  Receive Date: 20090401
  Receipt Date: 20090401
  Transmission Date: 20091009
  Serious: Yes (Life-Threatening, Hospitalization)
  Sender: FDA-Public Use
  Company Number: None

PATIENT
  Age: 89 Year
  Sex: Male

DRUGS (1)
  1. INSULIN [Suspect]
     Indication: HYPERKALAEMIA
     Dates: start: 20081001, end: 20081001

REACTIONS (6)
  - ENCEPHALOPATHY [None]
  - HYDRONEPHROSIS [None]
  - HYPOGLYCAEMIA [None]
  - HYPOKALAEMIA [None]
  - RENAL FAILURE ACUTE [None]
  - SYNCOPE [None]
